FAERS Safety Report 7044087-9 (Version None)
Quarter: 2010Q4

REPORT INFORMATION
  Report Type: 
  Country: None (occurrence: None)
  Receive Date: 20101013
  Receipt Date: 20101008
  Transmission Date: 20110411
  Serious: Yes (Hospitalization, Other)
  Sender: FDA-Public Use
  Company Number: SG-PFIZER INC-2010118283

PATIENT
  Age: 56 Year
  Sex: Female

DRUGS (2)
  1. CELECOXIB [Suspect]
     Indication: PAIN
     Dosage: 200 MG, EVERY AM, 1X/DAY
     Route: 048
  2. CELECOXIB [Suspect]
     Indication: POSTOPERATIVE CARE

REACTIONS (1)
  - HEPATITIS CHOLESTATIC [None]
